FAERS Safety Report 7258201-3 (Version None)
Quarter: 2011Q1

REPORT INFORMATION
  Report Type: 
  Country: None (occurrence: None)
  Receive Date: 20110129
  Receipt Date: 20100707
  Transmission Date: 20110831
  Serious: No
  Sender: FDA-Public Use
  Company Number: US-ABBOTT-10P-163-0655845-00

PATIENT
  Age: 22 Year
  Sex: Male

DRUGS (2)
  1. ARTHROTEC [Concomitant]
     Indication: PAIN
     Route: 048
  2. HUMIRA [Suspect]
     Indication: RHEUMATOID ARTHRITIS
     Dates: start: 20080701

REACTIONS (1)
  - EYE PAIN [None]
